FAERS Safety Report 8983216 (Version 2)
Quarter: 2014Q3

REPORT INFORMATION
  Report Type: Report from Study
  Country: BD (occurrence: BD)
  Receive Date: 20121224
  Receipt Date: 20140826
  Transmission Date: 20150326
  Serious: Yes (Death, Hospitalization, Other)
  Sender: FDA-Public Use
  Company Number: PHHY2012BD119006

PATIENT
  Age: 80 Year
  Sex: Female

DRUGS (3)
  1. ACLASTA [Suspect]
     Active Substance: ZOLEDRONIC ACID
     Indication: OSTEOPOROSIS
     Dosage: UNK, ONCE A YEAR
     Route: 042
     Dates: start: 20090519
  2. ACLASTA [Suspect]
     Active Substance: ZOLEDRONIC ACID
     Dosage: UNK, ONCE A YEAR
     Route: 042
  3. ACLASTA [Suspect]
     Active Substance: ZOLEDRONIC ACID
     Indication: ARTHRALGIA
     Dosage: UNK, ONCE A YEAR
     Route: 042

REACTIONS (1)
  - Haematopoietic neoplasm [Fatal]
